FAERS Safety Report 18213413 (Version 1)
Quarter: 2020Q3

REPORT INFORMATION
  Report Type: Spontaneous
  Country: US (occurrence: US)
  Receive Date: 20200831
  Receipt Date: 20200831
  Transmission Date: 20201103
  Serious: Yes (Hospitalization)
  Sender: FDA-Public Use
  Company Number: None

PATIENT
  Age: 75 Year
  Sex: Male
  Weight: 74.84 kg

DRUGS (1)
  1. IMATINIB (IMATINIB MESYLATE 400MG TAB) [Suspect]
     Active Substance: IMATINIB MESYLATE
     Indication: NEOPLASM MALIGNANT
     Route: 048
     Dates: start: 20200723

REACTIONS (3)
  - Swelling face [None]
  - Lip swelling [None]
  - Angioedema [None]

NARRATIVE: CASE EVENT DATE: 20200731
